FAERS Safety Report 11585037 (Version 1)
Quarter: 2015Q4

REPORT INFORMATION
  Report Type: Spontaneous
  Country: CN (occurrence: CN)
  Receive Date: 20151001
  Receipt Date: 20151001
  Transmission Date: 20160304
  Serious: Yes (Other)
  Sender: FDA-Public Use
  Company Number: CN-CIPLA LTD.-2015CN07605

PATIENT

DRUGS (11)
  1. ERYTHROPOIETIN [Suspect]
     Active Substance: ERYTHROPOIETIN
     Indication: ANAEMIA
     Dosage: 300 IU, TWICE A WEEK
     Route: 064
  2. AMLODIPINE [Suspect]
     Active Substance: AMLODIPINE BESYLATE
     Indication: BLOOD PRESSURE INADEQUATELY CONTROLLED
     Dosage: 5 MG, QD
     Route: 064
  3. MULTIVITAMINS [Suspect]
     Active Substance: VITAMINS
     Dosage: UNK
     Route: 064
  4. POLYFEROSE [Suspect]
     Active Substance: IRON
     Indication: ANAEMIA
     Dosage: 150 MG, QD
     Route: 064
  5. ISOSORBIDEDINITRATE [Suspect]
     Active Substance: ISOSORBIDE DINITRATE
     Indication: BLOOD PRESSURE INADEQUATELY CONTROLLED
     Dosage: 0.296 G, QD
     Route: 064
  6. FOLIC ACID. [Suspect]
     Active Substance: FOLIC ACID
     Indication: ANAEMIA
     Dosage: 0.4 MG, QD
     Route: 064
  7. DEXAMETHASONE. [Suspect]
     Active Substance: DEXAMETHASONE
     Indication: MATERNAL THERAPY TO ENHANCE FOETAL LUNG MATURITY
     Dosage: 6 MG, BID
     Route: 064
  8. COMPOUND AMINO ACID [Suspect]
     Active Substance: AMINO ACIDS
     Indication: NUTRITIONAL SUPPLEMENTATION
     Dosage: 250 ML, QD
     Route: 064
  9. LOW-MOLECULAR WEIGHT-HEPARIN [Suspect]
     Active Substance: UNSPECIFIED INGREDIENT
     Route: 064
  10. FRUCTOSEDIPHOSPHATE SODIUM [Suspect]
     Active Substance: FOSFRUCTOSE
     Dosage: 10 MG, QD
     Route: 064
  11. L-CARNITINE [Suspect]
     Active Substance: LEVOCARNITINE
     Indication: NUTRITIONAL SUPPLEMENTATION
     Dosage: 10 %, QD
     Route: 064

REACTIONS (5)
  - Maternal drugs affecting foetus [None]
  - Caesarean section [None]
  - Premature baby [Unknown]
  - Low birth weight baby [Recovering/Resolving]
  - Foetal exposure during pregnancy [Unknown]
